FAERS Safety Report 6502782-1 (Version None)
Quarter: 2009Q4

REPORT INFORMATION
  Report Type: 
  Country: None (occurrence: None)
  Receive Date: 20091127
  Receipt Date: 20090821
  Transmission Date: 20100525
  Serious: No
  Sender: FDA-Public Use
  Company Number: 001597

PATIENT
  Age: 8 Year
  Sex: Male

DRUGS (2)
  1. LACOSAMIDE [Suspect]
  2. KEPPRA [Suspect]

REACTIONS (2)
  - DRUG EFFECT DECREASED [None]
  - OFF LABEL USE [None]
